FAERS Safety Report 23343131 (Version 1)
Quarter: 2023Q4

REPORT INFORMATION
  Report Type: Spontaneous
  Country: US (occurrence: None)
  Receive Date: 20231226
  Receipt Date: 20231226
  Transmission Date: 20240110
  Serious: Yes (Hospitalization)
  Sender: FDA-Public Use
  Company Number: None

PATIENT
  Sex: Female

DRUGS (16)
  1. TEZSPIRE [Suspect]
     Active Substance: TEZEPELUMAB-EKKO
     Indication: Asthma
     Dosage: OTHER QUANTITY : 210/1.91 MG/ML;?OTHER FREQUENCY : EVERY 28 DAYS;?
     Route: 058
     Dates: start: 20230629
  2. METOLAZONE [Concomitant]
     Active Substance: METOLAZONE
  3. PANTOPRAZOLE [Concomitant]
     Active Substance: PANTOPRAZOLE
  4. FUROSEMIDE [Concomitant]
     Active Substance: FUROSEMIDE
  5. OLOPATADINE SPR 0.6% [Concomitant]
  6. POT CHLORIDE ER [Concomitant]
  7. ADVAIR HFA [Concomitant]
  8. IPRATROPIUM/SOL ALBUTER [Concomitant]
  9. SPIRONOLACTONE [Concomitant]
     Active Substance: SPIRONOLACTONE
  10. METHYLPREDNISOLONE [Concomitant]
     Active Substance: METHYLPREDNISOLONE
  11. FLOVENT HFA [Concomitant]
  12. IPRATROPIUM SPR 0.03% [Concomitant]
  13. AMOXICILLIN\CLAVULANATE POTASSIUM [Concomitant]
     Active Substance: AMOXICILLIN\CLAVULANATE POTASSIUM
  14. BENZONATATE [Concomitant]
     Active Substance: BENZONATATE
  15. MONTELUKAST [Concomitant]
     Active Substance: MONTELUKAST SODIUM
  16. SPIRIVA SPR [Concomitant]

REACTIONS (1)
  - Hospitalisation [None]
